FAERS Safety Report 7069201-0 (Version None)
Quarter: 2010Q4

REPORT INFORMATION
  Report Type: 
  Country: None (occurrence: None)
  Receive Date: 20101028
  Receipt Date: 20101022
  Transmission Date: 20110411
  Serious: Yes (Life-Threatening, Hospitalization)
  Sender: FDA-Public Use
  Company Number: B0680805A

PATIENT
  Sex: Female

DRUGS (13)
  1. ZOPHREN [Suspect]
     Dosage: 8MG PER DAY
     Route: 042
     Dates: start: 20100913, end: 20100917
  2. HOLOXAN [Suspect]
     Indication: PRODUCT USED FOR UNKNOWN INDICATION
     Route: 042
     Dates: start: 20100913, end: 20100914
  3. ETOPOSIDE [Suspect]
     Indication: PRODUCT USED FOR UNKNOWN INDICATION
     Route: 042
     Dates: start: 20100913, end: 20100915
  4. UROMITEXAN [Suspect]
     Indication: PRODUCT USED FOR UNKNOWN INDICATION
     Dosage: 4800MG PER DAY
     Route: 042
     Dates: start: 20100913, end: 20100915
  5. SOLU-MEDROL [Suspect]
     Indication: PRODUCT USED FOR UNKNOWN INDICATION
     Dosage: 40MG PER DAY
     Route: 042
     Dates: start: 20100913, end: 20100917
  6. ACUPAN [Suspect]
     Indication: PRODUCT USED FOR UNKNOWN INDICATION
     Dosage: 20MG PER DAY
     Route: 042
     Dates: start: 20100913, end: 20100917
  7. DEROXAT [Concomitant]
     Route: 065
  8. EMEND [Concomitant]
     Route: 065
  9. DUPHALAC [Concomitant]
     Route: 065
  10. LOVENOX [Concomitant]
     Route: 065
  11. LYRICA [Concomitant]
     Route: 065
  12. PRIMPERAN [Concomitant]
     Route: 065
  13. PARACETAMOL [Concomitant]
     Route: 065

REACTIONS (7)
  - ALTERED STATE OF CONSCIOUSNESS [None]
  - CONFUSIONAL STATE [None]
  - HYPONATRAEMIA [None]
  - HYPOPHOSPHATAEMIA [None]
  - MYOCLONUS [None]
  - TOXIC ENCEPHALOPATHY [None]
  - URINARY INCONTINENCE [None]
